FAERS Safety Report 22586652 (Version 1)
Quarter: 2023Q2

REPORT INFORMATION
  Report Type: Spontaneous
  Country: US (occurrence: US)
  Receive Date: 20230611
  Receipt Date: 20230611
  Transmission Date: 20230722
  Serious: No
  Sender: FDA-Public Use
  Company Number: US-PERRIGO-23US001493

PATIENT
  Age: 84 Year
  Sex: Female
  Weight: 45.351 kg

DRUGS (2)
  1. DICLOFENAC SODIUM [Suspect]
     Active Substance: DICLOFENAC SODIUM
     Indication: Arthralgia
     Dosage: UNKNOWN, BID, TO BOTH UPPER ARMS
     Route: 061
     Dates: start: 202212, end: 20230127
  2. DICLOFENAC SODIUM [Suspect]
     Active Substance: DICLOFENAC SODIUM
     Dosage: UNKNOWN, BID, TO BOTH SHOULDERS
     Route: 061
     Dates: start: 202212, end: 20230125

REACTIONS (3)
  - Product administered at inappropriate site [Unknown]
  - Incorrect product administration duration [Unknown]
  - Wrong technique in product usage process [Unknown]

NARRATIVE: CASE EVENT DATE: 20221201
